FAERS Safety Report 7112862-8 (Version None)
Quarter: 2010Q4

REPORT INFORMATION
  Report Type: 
  Country: None (occurrence: None)
  Receive Date: 20101119
  Receipt Date: 20091207
  Transmission Date: 20110411
  Serious: No
  Sender: FDA-Public Use
  Company Number: US-BRISTOL-MYERS SQUIBB COMPANY-14890008

PATIENT
  Sex: Male

DRUGS (1)
  1. AVALIDE [Suspect]
     Indication: HYPERTENSION
     Dosage: TAKEN FOR 3A?-4YEARS

REACTIONS (1)
  - BLOOD CREATININE INCREASED [None]
